FAERS Safety Report 7436104-9 (Version None)
Quarter: 2011Q2

REPORT INFORMATION
  Report Type: 
  Country: None (occurrence: None)
  Receive Date: 20110425
  Receipt Date: 20110413
  Transmission Date: 20111010
  Serious: Yes (Hospitalization)
  Sender: FDA-Public Use
  Company Number: NL-MEDIMMUNE-MEDI-0013112

PATIENT
  Sex: Female
  Weight: 10.5 kg

DRUGS (1)
  1. SYNAGIS [Suspect]
     Route: 030
     Dates: start: 20101122, end: 20110329

REACTIONS (3)
  - DYSPNOEA [None]
  - PNEUMONIA [None]
  - ROTAVIRUS INFECTION [None]
